FAERS Safety Report 26196526 (Version 1)
Quarter: 2025Q4

REPORT INFORMATION
  Report Type: Spontaneous
  Country: US (occurrence: US)
  Receive Date: 20251224
  Receipt Date: 20251224
  Transmission Date: 20260118
  Serious: Yes (Hospitalization, Other)
  Sender: ASCEND THERAPEUTICS US, LLC
  Company Number: US-Ascend Therapeutics US, LLC-2190546

PATIENT
  Age: 28 Year

DRUGS (2)
  1. ANDROGEL [Suspect]
     Active Substance: TESTOSTERONE
     Indication: Product used for unknown indication
  2. TESTOSTERONE [Suspect]
     Active Substance: TESTOSTERONE

REACTIONS (3)
  - Atrial fibrillation [Recovering/Resolving]
  - Polycythaemia [Recovering/Resolving]
  - Cardiomyopathy [Recovering/Resolving]
